FAERS Safety Report 4685274-4 (Version None)
Quarter: 2005Q2

REPORT INFORMATION
  Report Type: 
  Country: None (occurrence: None)
  Receive Date: 20050608
  Receipt Date: 20050526
  Transmission Date: 20051028
  Serious: Yes (Hospitalization, Other)
  Sender: FDA-Public Use
  Company Number: AU-JNJFOC-20050505602

PATIENT
  Age: 17 Year
  Sex: Male
  Weight: 47 kg

DRUGS (7)
  1. IBUPROFEN [Suspect]
     Route: 049
  2. FLIXOTIDE [Concomitant]
     Dosage: 2 PUFFS, B.D.
     Route: 055
  3. MIDAZOLAM [Concomitant]
     Route: 042
  4. PROPOFOL [Concomitant]
     Route: 042
  5. NITROUS OXIDE [Concomitant]
  6. ISOFLURANE [Concomitant]
  7. BUPIVACAINE [Concomitant]
     Dosage: 0.5% 12 ML

REACTIONS (1)
  - STATUS ASTHMATICUS [None]
